FAERS Safety Report 17628587 (Version 2)
Quarter: 2020Q2

REPORT INFORMATION
  Report Type: Spontaneous
  Country: IN (occurrence: IN)
  Receive Date: 20200406
  Receipt Date: 20200504
  Transmission Date: 20200713
  Serious: Yes (Hospitalization, Other)
  Sender: FDA-Public Use
  Company Number: IN-DENTSPLY-2020SCDP000118

PATIENT
  Age: 35 Year
  Sex: Female
  Weight: 44 kg

DRUGS (9)
  1. DEXMEDETOMIDINE. [Suspect]
     Active Substance: DEXMEDETOMIDINE
     Indication: PREMEDICATION
     Dosage: 20 MICROGRAM
     Route: 042
  2. DEXMEDETOMIDINE. [Suspect]
     Active Substance: DEXMEDETOMIDINE
     Dosage: 24 MICROGRAM
     Route: 042
  3. PENTAZOCINE [Concomitant]
     Active Substance: PENTAZOCINE
     Indication: PREMEDICATION
     Dosage: 20 MILLIGRAM
  4. LIDOCAINE HYDROCHLORIDE AND EPINEPHRINE BITARTRATE [Suspect]
     Active Substance: EPINEPHRINE BITARTRATE\LIDOCAINE HYDROCHLORIDE
     Indication: LOCAL ANAESTHESIA
     Dosage: 3 MG ADRENALINE (1:2,00,000) IN 30 ML LIGNOCAINE AS NASAL PACKING
     Route: 045
  5. MIDAZOLAM. [Concomitant]
     Active Substance: MIDAZOLAM
     Indication: PREMEDICATION
     Dosage: 1 MILLIGRAM
     Route: 042
  6. LIDOCAINE. [Concomitant]
     Active Substance: LIDOCAINE
     Indication: PRODUCT USED FOR UNKNOWN INDICATION
     Dosage: 30 MILLILITER, 3 AMPULES OF ADRENALINE (1:2,00,000) ADDED WITH 30 ML OF LIGNOCAINE IN BOWL (RESULTAN
  7. DEXMEDETOMIDINE. [Suspect]
     Active Substance: DEXMEDETOMIDINE
     Dosage: 16 MICROGRAM
     Route: 042
  8. GLYCOPYRROLATE [GLYCOPYRRONIUM BROMIDE] [Concomitant]
     Active Substance: GLYCOPYRROLATE
     Indication: PREMEDICATION
     Dosage: 0.2 MILLIGRAM
  9. EPINEPHRINE. [Suspect]
     Active Substance: EPINEPHRINE
     Indication: PRODUCT USED FOR UNKNOWN INDICATION
     Dosage: 3 AMPULES OF ADRENALINE (1:2,00,000) ADDED WITH 30 ML OF LIGNOCAINE IN BOWL (RESULTANT CONCENTRATION

REACTIONS (9)
  - Tachycardia [Recovered/Resolved]
  - Ventricular extrasystoles [Recovered/Resolved]
  - Acute pulmonary oedema [Recovered/Resolved]
  - Ejection fraction decreased [Recovered/Resolved]
  - Heart rate increased [Recovered/Resolved]
  - Cardiac dysfunction [Recovered/Resolved]
  - Troponin T increased [Recovered/Resolved]
  - Ventricular hypokinesia [Recovered/Resolved]
  - Blood pressure increased [Recovered/Resolved]
